FAERS Safety Report 15366541 (Version 2)
Quarter: 2018Q3

REPORT INFORMATION
  Report Type: Report from Study
  Country: ZA (occurrence: ZA)
  Receive Date: 20180910
  Receipt Date: 20180918
  Transmission Date: 20181010
  Serious: Yes (Hospitalization, Other)
  Sender: FDA-Public Use
  Company Number: ZA-VIIV HEALTHCARE LIMITED-ZA2018GSK159990

PATIENT
  Age: 48 Year
  Sex: Female
  Weight: 74.2 kg

DRUGS (3)
  1. BROMAZEPAM [Concomitant]
     Active Substance: BROMAZEPAM
     Indication: INSOMNIA
  2. EMTRICITABINE + TENOFOVIR [Suspect]
     Active Substance: EMTRICITABINE\TENOFOVIR
     Indication: HIV INFECTION
     Dosage: 25/200 MG, QD
     Route: 048
     Dates: start: 20170712
  3. DOLUTEGRAVIR [Suspect]
     Active Substance: DOLUTEGRAVIR
     Indication: HIV INFECTION
     Dosage: 50 MG, QD
     Route: 048
     Dates: start: 20170712

REACTIONS (2)
  - Psychotic symptom [Recovered/Resolved with Sequelae]
  - Affective disorder [Recovered/Resolved with Sequelae]

NARRATIVE: CASE EVENT DATE: 20180328
